FAERS Safety Report 16465387 (Version 6)
Quarter: 2019Q3

REPORT INFORMATION
  Report Type: Spontaneous
  Country: US (occurrence: US)
  Receive Date: 20190621
  Receipt Date: 20190813
  Transmission Date: 20191004
  Serious: Yes (Other)
  Sender: FDA-Public Use
  Company Number: US-ACTELION-A-NJ2019-192086

PATIENT
  Age: 44 Year
  Sex: Female
  Weight: 72.56 kg

DRUGS (6)
  1. ADCIRCA [Concomitant]
     Active Substance: TADALAFIL
  2. AMLODIPINE [Concomitant]
     Active Substance: AMLODIPINE BESYLATE
  3. UPTRAVI [Suspect]
     Active Substance: SELEXIPAG
     Dosage: 400 MCG
     Route: 048
     Dates: start: 20190613
  4. UPTRAVI [Suspect]
     Active Substance: SELEXIPAG
     Dosage: 200 MCG, BID
     Route: 048
  5. ELIQUIS [Concomitant]
     Active Substance: APIXABAN
  6. UPTRAVI [Suspect]
     Active Substance: SELEXIPAG
     Indication: PULMONARY ARTERIAL HYPERTENSION
     Dosage: 600 MCG, BID
     Route: 048
     Dates: start: 20190706

REACTIONS (18)
  - Respiratory disorder [Unknown]
  - Vomiting [Unknown]
  - Hypoaesthesia [Unknown]
  - Lethargy [Unknown]
  - Dysarthria [Unknown]
  - Chemotherapy [Unknown]
  - Memory impairment [Unknown]
  - Gastrooesophageal reflux disease [Not Recovered/Not Resolved]
  - Flushing [Unknown]
  - Aphasia [Unknown]
  - Headache [Not Recovered/Not Resolved]
  - Extra dose administered [Unknown]
  - Anxiety [Unknown]
  - Nausea [Unknown]
  - Arthralgia [Unknown]
  - Confusional state [Unknown]
  - Paraesthesia [Unknown]
  - Pain in extremity [Unknown]

NARRATIVE: CASE EVENT DATE: 20190627
